FAERS Safety Report 9376592 (Version 2)
Quarter: 2013Q3

REPORT INFORMATION
  Report Type: Spontaneous
  Country: ES (occurrence: ES)
  Receive Date: 20130701
  Receipt Date: 20130909
  Transmission Date: 20140515
  Serious: Yes (Hospitalization)
  Sender: FDA-Public Use
  Company Number: ES-009507513-1306ESP014010

PATIENT
  Age: 50 Year
  Sex: Female

DRUGS (1)
  1. SYCREST [Suspect]
     Indication: DELUSION
     Dosage: 5 MG, QD
     Route: 060
     Dates: start: 20130607, end: 20130614

REACTIONS (2)
  - Transient ischaemic attack [Recovered/Resolved]
  - Off label use [Unknown]
